FAERS Safety Report 6401285-2 (Version None)
Quarter: 2009Q4

REPORT INFORMATION
  Report Type: 
  Country: None (occurrence: None)
  Receive Date: 20091009
  Receipt Date: 20091009
  Transmission Date: 20100525
  Serious: Yes (Other)
  Sender: FDA-Public Use
  Company Number: None

PATIENT
  Age: 3 Month
  Sex: Female
  Weight: 5.66 kg

DRUGS (1)
  1. TAMIFLU [Suspect]
     Indication: INFLUENZA
     Dosage: 20 MG BID PO
     Route: 048
     Dates: start: 20091005, end: 20091008

REACTIONS (2)
  - DIARRHOEA [None]
  - HAEMATOCHEZIA [None]
